FAERS Safety Report 9086424 (Version 1)
Quarter: 2013Q1

REPORT INFORMATION
  Report Type: Report from Study
  Country: US (occurrence: US)
  Receive Date: 20130131
  Receipt Date: 20130131
  Transmission Date: 20140127
  Serious: No
  Sender: FDA-Public Use
  Company Number: US-ABBOTT-12P-163-0995061-00

PATIENT
  Age: 44 Year
  Sex: Female

DRUGS (6)
  1. HUMIRA [Suspect]
     Indication: PSORIASIS
     Route: 058
     Dates: start: 20120926
  2. HUMIRA [Suspect]
     Route: 058
     Dates: start: 20121003
  3. ZOLOFT [Concomitant]
     Indication: DEPRESSION
     Route: 048
  4. SYNTHROID [Concomitant]
     Indication: HYPOTHYROIDISM
     Route: 048
  5. TOPAMAX [Concomitant]
     Indication: TRIGEMINAL NEURALGIA
     Route: 048
  6. VITAMIN D [Concomitant]
     Indication: PRODUCT USED FOR UNKNOWN INDICATION
     Dosage: DAILY

REACTIONS (2)
  - Tooth abscess [Not Recovered/Not Resolved]
  - Skin tightness [Not Recovered/Not Resolved]
